FAERS Safety Report 14494609 (Version 1)
Quarter: 2018Q1

REPORT INFORMATION
  Report Type: Spontaneous
  Country: US (occurrence: US)
  Receive Date: 20180205
  Receipt Date: 20180205
  Transmission Date: 20180509
  Serious: Yes (Hospitalization, Other)
  Sender: FDA-Public Use
  Company Number: None

PATIENT
  Age: 56 Year
  Sex: Male

DRUGS (2)
  1. WARFARIN [Suspect]
     Active Substance: WARFARIN
  2. IBUPROFEN. [Suspect]
     Active Substance: IBUPROFEN

REACTIONS (2)
  - International normalised ratio increased [None]
  - Haemoglobin decreased [None]
